FAERS Safety Report 20557386 (Version 1)
Quarter: 2022Q1

REPORT INFORMATION
  Report Type: Spontaneous
  Country: CN (occurrence: CN)
  Receive Date: 20220307
  Receipt Date: 20220307
  Transmission Date: 20220423
  Serious: Yes (Hospitalization)
  Sender: FDA-Public Use
  Company Number: CN-009507513-2203CHN001329

PATIENT
  Age: 40 Year
  Sex: Male

DRUGS (2)
  1. STEGLATRO [Suspect]
     Active Substance: ERTUGLIFLOZIN PIDOLATE
     Indication: Blood glucose abnormal
     Dosage: 5 MG, QD
     Route: 048
     Dates: start: 20220221, end: 20220224
  2. METFORMIN HYDROCHLORIDE\PIOGLITAZONE HYDROCHLORIDE [Suspect]
     Active Substance: METFORMIN HYDROCHLORIDE\PIOGLITAZONE HYDROCHLORIDE
     Indication: Blood glucose abnormal
     Dosage: 1 DOSAGE FORM, TID
     Route: 048

REACTIONS (2)
  - Hospitalisation [Unknown]
  - Ketosis [Recovering/Resolving]

NARRATIVE: CASE EVENT DATE: 20220221
